FAERS Safety Report 8423986-7 (Version None)
Quarter: 2012Q2

REPORT INFORMATION
  Report Type: 
  Country: None (occurrence: None)
  Receive Date: 20120608
  Receipt Date: 20120531
  Transmission Date: 20120825
  Serious: Yes (Other)
  Sender: FDA-Public Use
  Company Number: US-RB-041029-12

PATIENT
  Sex: Female

DRUGS (2)
  1. PERCOCET [Concomitant]
     Indication: PAIN
     Dosage: DOSING DETAILS UNKNOWN
     Route: 065
     Dates: end: 20120201
  2. SUBOXONE [Suspect]
     Indication: DRUG DEPENDENCE
     Dosage: 8 MG DAILY TAPERED TO 2 MG DAILY
     Route: 060
     Dates: start: 20120201, end: 20120430

REACTIONS (6)
  - MATERNAL EXPOSURE DURING PREGNANCY [None]
  - PYREXIA [None]
  - SUBSTANCE ABUSE [None]
  - VOMITING [None]
  - WRONG TECHNIQUE IN DRUG USAGE PROCESS [None]
  - PROLONGED LABOUR [None]
